FAERS Safety Report 17289954 (Version 1)
Quarter: 2020Q1

REPORT INFORMATION
  Report Type: Spontaneous
  Country: ZA (occurrence: ZA)
  Receive Date: 20200120
  Receipt Date: 20200120
  Transmission Date: 20200409
  Serious: Yes (Other)
  Sender: FDA-Public Use
  Company Number: ZA-PFIZER INC-2020022522

PATIENT
  Age: 19 Year
  Sex: Female

DRUGS (1)
  1. EXSIRA [Suspect]
     Active Substance: DESVENLAFAXINE SUCCINATE
     Dosage: UNK

REACTIONS (6)
  - Syncope [Unknown]
  - Palpitations [Unknown]
  - Vomiting [Unknown]
  - Loss of consciousness [Unknown]
  - Hot flush [Unknown]
  - Anxiety [Unknown]
